FAERS Safety Report 25455596 (Version 1)
Quarter: 2025Q2

REPORT INFORMATION
  Report Type: Spontaneous
  Country: FR (occurrence: FR)
  Receive Date: 20250619
  Receipt Date: 20250619
  Transmission Date: 20250717
  Serious: Yes (Other)
  Sender: CHEPLAPHARM
  Company Number: None

PATIENT
  Age: 47 Year
  Sex: Male

DRUGS (7)
  1. QUETIAPINE [Suspect]
     Active Substance: QUETIAPINE
     Indication: Depression
     Dosage: DAILY DOSE: 50 MILLIGRAM
     Route: 048
     Dates: start: 20240223
  2. CYAMEMAZINE [Suspect]
     Active Substance: CYAMEMAZINE
     Indication: Depression
     Dosage: DAILY DOSE: 50 MILLIGRAM
     Route: 048
     Dates: start: 20221115, end: 20250420
  3. CYAMEMAZINE [Suspect]
     Active Substance: CYAMEMAZINE
     Indication: Depression
     Dosage: DAILY DOSE: 37.5 MILLIGRAM
     Route: 048
     Dates: start: 202301
  4. CYAMEMAZINE [Suspect]
     Active Substance: CYAMEMAZINE
     Indication: Depression
     Dosage: DAILY DOSE: 20 MILLIGRAM
     Route: 048
     Dates: start: 202402
  5. PAROXETINE HYDROCHLORIDE [Suspect]
     Active Substance: PAROXETINE HYDROCHLORIDE
     Indication: Depression
     Dosage: DOSE NOT CHANGED??DAILY DOSE: 60 MILLIGRAM
     Route: 048
     Dates: start: 20231130
  6. DIAZEPAM [Suspect]
     Active Substance: DIAZEPAM
     Indication: Anxiety
     Dosage: DOSE NOT CHANGED??DAILY DOSE: 15 MILLIGRAM
     Route: 048
     Dates: start: 20231130
  7. ZOPICLONE [Suspect]
     Active Substance: ZOPICLONE
     Indication: Insomnia
     Dosage: DOSE NOT CHANGED??DAILY DOSE: 7.5 MILLIGRAM
     Route: 048
     Dates: start: 20240223

REACTIONS (1)
  - Enuresis [Recovering/Resolving]

NARRATIVE: CASE EVENT DATE: 20240515
